FAERS Safety Report 13504023 (Version 6)
Quarter: 2018Q1

REPORT INFORMATION
  Report Type: Spontaneous
  Country: JP (occurrence: JP)
  Receive Date: 20170502
  Receipt Date: 20180222
  Transmission Date: 20180508
  Serious: Yes (Death, Other)
  Sender: FDA-Public Use
  Company Number: JP-009507513-1704JPN002352J

PATIENT
  Age: 64 Year
  Sex: Male
  Weight: 58 kg

DRUGS (3)
  1. AMBROXOL HYDROCHLORIDE [Concomitant]
     Active Substance: AMBROXOL HYDROCHLORIDE
     Indication: SQUAMOUS CELL CARCINOMA OF LUNG
     Dosage: 45 MG, DAILY
     Route: 048
     Dates: end: 20170423
  2. ONETRAM [Concomitant]
     Active Substance: TRAMADOL HYDROCHLORIDE
     Indication: SQUAMOUS CELL CARCINOMA OF LUNG
     Dosage: 100 MG, DAILY
     Route: 048
     Dates: start: 20170407, end: 20170423
  3. KEYTRUDA [Suspect]
     Active Substance: PEMBROLIZUMAB
     Indication: SQUAMOUS CELL CARCINOMA OF LUNG
     Dosage: 200 MG, EVERY 3 WEEK
     Route: 041
     Dates: start: 20170330, end: 20170420

REACTIONS (1)
  - Malignant neoplasm progression [Fatal]

NARRATIVE: CASE EVENT DATE: 20170425
